FAERS Safety Report 24570672 (Version 2)
Quarter: 2024Q4

REPORT INFORMATION
  Report Type: Spontaneous
  Country: PL (occurrence: PL)
  Receive Date: 20241031
  Receipt Date: 20241127
  Transmission Date: 20250115
  Serious: Yes (Death, Hospitalization)
  Sender: BOEHRINGER INGELHEIM
  Company Number: PL-BoehringerIngelheim-2024-BI-060305

PATIENT
  Age: 63 Year
  Sex: Male
  Weight: 82 kg

DRUGS (3)
  1. NINTEDANIB [Suspect]
     Active Substance: NINTEDANIB
     Indication: Lung adenocarcinoma
     Dosage: IV COURSES ACCORDING TO DOCETAXEL-NINTEDANIB REGIMEN WAS GIVEN; 2X 200
     Route: 048
     Dates: start: 2024, end: 2024
  2. NINTEDANIB [Suspect]
     Active Substance: NINTEDANIB
     Dosage: MAINTENANCE TREATMENT WITH NINTEDANIB (VARGATEF) TO JUNE 2024; 2X 200
     Route: 048
     Dates: start: 2024, end: 202405
  3. DOCETAXEL [Concomitant]
     Active Substance: DOCETAXEL
     Indication: Lung adenocarcinoma
     Dosage: IV COURSES ACCORDING TO DOCETAXEL-NINTEDANIB REGIMEN WAS GIVEN
     Dates: start: 2024, end: 2024

REACTIONS (4)
  - Dyspnoea [Fatal]
  - Oxygen saturation decreased [Fatal]
  - Respiratory failure [Fatal]
  - Lung neoplasm malignant [Fatal]

NARRATIVE: CASE EVENT DATE: 20240601
